FAERS Safety Report 6769976-1 (Version None)
Quarter: 2010Q2

REPORT INFORMATION
  Report Type: 
  Country: None (occurrence: None)
  Receive Date: 20100615
  Receipt Date: 20100603
  Transmission Date: 20101027
  Serious: Yes (Hospitalization)
  Sender: FDA-Public Use
  Company Number: ES-CVT-100354

PATIENT

DRUGS (1)
  1. RANEXA [Suspect]
     Indication: MYOCARDIAL ISCHAEMIA
     Dosage: 375 MG, BID
     Route: 048
     Dates: start: 20090101, end: 20100101

REACTIONS (3)
  - PYREXIA [None]
  - RENAL IMPAIRMENT [None]
  - WRONG TECHNIQUE IN DRUG USAGE PROCESS [None]
